FAERS Safety Report 4700112-9 (Version None)
Quarter: 2005Q2

REPORT INFORMATION
  Report Type: 
  Country: None (occurrence: None)
  Receive Date: 20050627
  Receipt Date: 20050617
  Transmission Date: 20051028
  Serious: Yes (Hospitalization)
  Sender: FDA-Public Use
  Company Number: US-AMGEN-US138358

PATIENT
  Age: 87 Year
  Sex: Female

DRUGS (6)
  1. ARANESP [Suspect]
     Indication: DIALYSIS
     Route: 058
     Dates: start: 20041001, end: 20050608
  2. EPOGEN [Suspect]
     Indication: RENAL FAILURE CHRONIC
     Route: 065
  3. PREDNISONE TAB [Concomitant]
     Route: 065
  4. DARVOCET-N 100 [Concomitant]
     Route: 065
  5. PLAVIX [Concomitant]
     Route: 065
  6. VITAMIN B-12 [Concomitant]
     Route: 065

REACTIONS (7)
  - CLOSTRIDIUM DIFFICILE SEPSIS [None]
  - DYSPNOEA [None]
  - FATIGUE [None]
  - HAEMOGLOBIN DECREASED [None]
  - LETHARGY [None]
  - PNEUMONIA [None]
  - SOMNOLENCE [None]
